FAERS Safety Report 9271054 (Version 2)
Quarter: 2013Q2

REPORT INFORMATION
  Report Type: Spontaneous
  Country: US (occurrence: US)
  Receive Date: 20130506
  Receipt Date: 20130619
  Transmission Date: 20140414
  Serious: Yes (Life-Threatening)
  Sender: FDA-Public Use
  Company Number: US-ROCHE-1219720

PATIENT
  Age: 20 Year
  Sex: Male

DRUGS (4)
  1. KLONOPIN [Suspect]
     Indication: ANXIETY
     Route: 048
     Dates: start: 201203
  2. KLONOPIN [Suspect]
     Indication: OBSESSIVE-COMPULSIVE DISORDER
     Route: 048
     Dates: start: 201304
  3. CITALOPRAM [Concomitant]
     Indication: ANXIETY
     Route: 048
  4. CITALOPRAM [Concomitant]
     Indication: SLEEP DISORDER

REACTIONS (2)
  - Convulsion [Recovered/Resolved]
  - Apnoea [Recovered/Resolved]
